FAERS Safety Report 8287304-X (Version None)
Quarter: 2012Q2

REPORT INFORMATION
  Report Type: 
  Country: None (occurrence: None)
  Receive Date: 20120416
  Receipt Date: 20120416
  Transmission Date: 20120825
  Serious: No
  Sender: FDA-Public Use
  Company Number: None

PATIENT
  Age: 42 Year
  Sex: Male
  Weight: 127 kg

DRUGS (1)
  1. CYMBALTA [Suspect]
     Indication: DEPRESSION
     Dates: start: 20080301, end: 20111101

REACTIONS (9)
  - IRRITABILITY [None]
  - JOINT STIFFNESS [None]
  - GASTRIC DISORDER [None]
  - OEDEMA PERIPHERAL [None]
  - GRIP STRENGTH DECREASED [None]
  - SENSORY LOSS [None]
  - ECONOMIC PROBLEM [None]
  - PAIN IN EXTREMITY [None]
  - VISION BLURRED [None]
